FAERS Safety Report 8843380 (Version 2)
Quarter: 2012Q4

REPORT INFORMATION
  Report Type: 
  Country: US (occurrence: US)
  Receive Date: 20121016
  Receipt Date: 20121029
  Transmission Date: 20130627
  Serious: Yes (Other)
  Sender: FDA-Public Use
  Company Number: US-PFIZER INC-2012256005

PATIENT
  Sex: Female

DRUGS (1)
  1. XANAX [Suspect]
     Dosage: UNK
     Dates: start: 20101001

REACTIONS (2)
  - Necrosis [Unknown]
  - Lung disorder [Unknown]
